FAERS Safety Report 5971462-3 (Version None)
Quarter: 2008Q4

REPORT INFORMATION
  Report Type: 
  Country: None (occurrence: None)
  Receive Date: 20081201
  Receipt Date: 20081119
  Transmission Date: 20090506
  Serious: Yes (Other)
  Sender: FDA-Public Use
  Company Number: CA-JNJFOC-20081104868

PATIENT
  Sex: Male
  Weight: 107 kg

DRUGS (3)
  1. REMICADE [Suspect]
     Dosage: 16TH DOSE
     Route: 042
  2. REMICADE [Suspect]
     Indication: RHEUMATOID ARTHRITIS
     Route: 042
  3. METHOTREXATE [Concomitant]
     Indication: DRUG USE FOR UNKNOWN INDICATION
     Dosage: ON SUNDAYS
     Route: 048

REACTIONS (2)
  - FALL [None]
  - WRIST FRACTURE [None]
